FAERS Safety Report 19174775 (Version 2)
Quarter: 2021Q3

REPORT INFORMATION
  Report Type: Report from Study
  Country: KR (occurrence: KR)
  Receive Date: 20210423
  Receipt Date: 20210702
  Transmission Date: 20211014
  Serious: Yes (Hospitalization)
  Sender: FDA-Public Use
  Company Number: KR-ASTRAZENECA-2021A327239

PATIENT
  Age: 784 Month
  Sex: Male
  Weight: 62 kg

DRUGS (10)
  1. SURFOLASE [Concomitant]
     Indication: PROPHYLAXIS
     Dates: start: 20201103
  2. IMFINZI [Suspect]
     Active Substance: DURVALUMAB
     Indication: NON-SMALL CELL LUNG CANCER
     Dosage: 620
     Route: 042
     Dates: start: 20201201, end: 20201201
  3. IMFINZI [Suspect]
     Active Substance: DURVALUMAB
     Indication: NON-SMALL CELL LUNG CANCER
     Dosage: 620
     Route: 042
     Dates: start: 20210128, end: 20210128
  4. CODAEWON FORTE SYR [Concomitant]
     Indication: PROPHYLAXIS
     Dates: start: 20200922
  5. IMFINZI [Suspect]
     Active Substance: DURVALUMAB
     Indication: NON-SMALL CELL LUNG CANCER
     Dosage: 620
     Route: 042
     Dates: start: 20201230, end: 20201230
  6. LANSTON LFDT [Concomitant]
     Active Substance: LANSOPRAZOLE
     Indication: PROPHYLAXIS
     Dates: start: 20201103
  7. DICODE [Concomitant]
     Indication: PROPHYLAXIS
     Dates: start: 20201103
  8. PRAVAFENIX CAP [Concomitant]
     Indication: HYPERLIPIDAEMIA
     Dates: start: 20201103
  9. IMFINZI [Suspect]
     Active Substance: DURVALUMAB
     Indication: NON-SMALL CELL LUNG CANCER
     Dosage: 620
     Route: 042
     Dates: start: 20201215, end: 20201215
  10. IMFINZI [Suspect]
     Active Substance: DURVALUMAB
     Indication: NON-SMALL CELL LUNG CANCER
     Dosage: 620
     Route: 042
     Dates: start: 20210219, end: 20210219

REACTIONS (1)
  - Pericarditis [Recovered/Resolved with Sequelae]

NARRATIVE: CASE EVENT DATE: 20210305
